FAERS Safety Report 10190192 (Version 2)
Quarter: 2014Q2

REPORT INFORMATION
  Report Type: Report from Study
  Country: US (occurrence: US)
  Receive Date: 20140522
  Receipt Date: 20140620
  Transmission Date: 20141212
  Serious: Yes (Hospitalization, Other)
  Sender: FDA-Public Use
  Company Number: GXBR2014US001284

PATIENT
  Age: 60 Year
  Sex: Male
  Weight: 72.56 kg

DRUGS (3)
  1. ENOXAPARIN SODIUM [Suspect]
     Indication: THROMBOSIS PROPHYLAXIS
     Dosage: 75 MG, QD
     Route: 058
  2. ENOXAPARIN SODIUM [Suspect]
     Dosage: 100 MG, QD
     Route: 058
     Dates: start: 20140401
  3. CHEMOTHERAPEUTICS [Concomitant]
     Indication: COLON CANCER
     Dosage: UNK DF, UNK

REACTIONS (6)
  - Abdominal pain upper [Not Recovered/Not Resolved]
  - Vomiting [Not Recovered/Not Resolved]
  - Pyrexia [Recovered/Resolved]
  - Chills [Recovered/Resolved]
  - Infection [Unknown]
  - Thrombosis [Recovered/Resolved]
